FAERS Safety Report 21568959 (Version 2)
Quarter: 2022Q4

REPORT INFORMATION
  Report Type: Spontaneous
  Country: CN (occurrence: CN)
  Receive Date: 20221108
  Receipt Date: 20221213
  Transmission Date: 20230113
  Serious: Yes (Other)
  Sender: FDA-Public Use
  Company Number: CN-SUN PHARMACEUTICAL INDUSTRIES LTD-2022R1-362176

PATIENT
  Age: 26 Month
  Sex: Male

DRUGS (2)
  1. TEMOZOLOMIDE [Suspect]
     Active Substance: TEMOZOLOMIDE
     Indication: Chemotherapy
     Dosage: 200 MILLIGRAM/SQ. METER, DAILY
     Route: 048
  2. APATINIB [Suspect]
     Active Substance: APATINIB
     Indication: Chemotherapy
     Dosage: 250 MILLIGRAM EVERY OTHER DAY
     Route: 048

REACTIONS (1)
  - Leukopenia [Unknown]
